FAERS Safety Report 5240069-8 (Version None)
Quarter: 2007Q1

REPORT INFORMATION
  Report Type: 
  Country: None (occurrence: None)
  Receive Date: 20070216
  Receipt Date: 20070207
  Transmission Date: 20070707
  Serious: Yes (Other)
  Sender: FDA-Public Use
  Company Number: IE-PFIZER INC-2007010160

PATIENT
  Sex: Male

DRUGS (4)
  1. LYRICA [Suspect]
     Route: 048
  2. OXYCONTIN [Concomitant]
     Indication: NEOPLASM
  3. OXYNORM [Concomitant]
     Indication: NEOPLASM
  4. AMITRIPTYLINE HCL [Concomitant]

REACTIONS (4)
  - CONFUSIONAL STATE [None]
  - DRUG TOXICITY [None]
  - FEELING ABNORMAL [None]
  - HALLUCINATION [None]
